FAERS Safety Report 25245505 (Version 1)
Quarter: 2025Q2

REPORT INFORMATION
  Report Type: Spontaneous
  Country: BR (occurrence: BR)
  Receive Date: 20250428
  Receipt Date: 20250428
  Transmission Date: 20250717
  Serious: Yes (Death)
  Sender: GENMAB
  Company Number: BR-ABBVIE-6253335

PATIENT

DRUGS (1)
  1. EPCORITAMAB [Suspect]
     Active Substance: EPCORITAMAB
     Indication: Central nervous system lymphoma
     Route: 058

REACTIONS (2)
  - Death [Fatal]
  - Drug ineffective [Unknown]
